APPROVED DRUG PRODUCT: PAMIDRONATE DISODIUM
Active Ingredient: PAMIDRONATE DISODIUM
Strength: 30MG/10ML (3MG/ML)
Dosage Form/Route: INJECTABLE;INJECTION
Application: A078373 | Product #001 | TE Code: AP1
Applicant: SAGENT PHARMACEUTICALS INC
Approved: Dec 23, 2008 | RLD: No | RS: No | Type: RX